FAERS Safety Report 6041936-8 (Version None)
Quarter: 2009Q1

REPORT INFORMATION
  Report Type: 
  Country: None (occurrence: None)
  Receive Date: 20090116
  Receipt Date: 20070703
  Transmission Date: 20090719
  Serious: Yes (Death)
  Sender: FDA-Public Use
  Company Number: PA-ROCHE-486064

PATIENT
  Sex: Male
  Weight: 44.2 kg

DRUGS (4)
  1. CAPECITABINE [Suspect]
     Indication: GASTRIC CANCER
     Dosage: GIVEN ON DAYS 1 - 14 EVERY 3 WEEKS.
     Route: 048
     Dates: start: 20070207, end: 20070307
  2. CISPLATIN [Suspect]
     Indication: GASTRIC CANCER
     Dosage: GIVEN ON DAY 1 OF EVERY 3 WEEK CYCLE.
     Route: 042
     Dates: start: 20070207, end: 20070307
  3. DEXAMETASON [Concomitant]
     Dates: start: 20070307, end: 20070307
  4. GRANISETRON  HCL [Concomitant]
     Dates: start: 20070307, end: 20070307

REACTIONS (1)
  - DEATH [None]
